FAERS Safety Report 4480434-X (Version None)
Quarter: 2004Q4

REPORT INFORMATION
  Report Type: 
  Country: None (occurrence: None)
  Receive Date: 20041018
  Receipt Date: 20041005
  Transmission Date: 20050328
  Serious: Yes (Other)
  Sender: FDA-Public Use
  Company Number: 10063198-NA01

PATIENT

DRUGS (1)
  1. HEPARIN SODIUM 25,000 UNITS IN DEXTROSE 5% [Suspect]
     Dosage: IV
     Route: 042

REACTIONS (1)
  - MEDICATION ERROR [None]
